FAERS Safety Report 6474644-X (Version None)
Quarter: 2009Q4

REPORT INFORMATION
  Report Type: 
  Country: None (occurrence: None)
  Receive Date: 20091204
  Receipt Date: 20090317
  Transmission Date: 20100525
  Serious: No
  Sender: FDA-Public Use
  Company Number: US-ELI_LILLY_AND_COMPANY-US200901005147

PATIENT
  Sex: Female
  Weight: 98.866 kg

DRUGS (10)
  1. BYETTA [Suspect]
     Indication: TYPE 2 DIABETES MELLITUS
     Dosage: 10 UG, 2/D
     Route: 058
     Dates: start: 20060101, end: 20090101
  2. METFORMIN HCL [Concomitant]
     Indication: TYPE 2 DIABETES MELLITUS
     Dosage: UNK, UNKNOWN
     Route: 048
  3. GLIMEPIRIDE [Concomitant]
     Dosage: UNK, UNKNOWN
  4. LISINOPRIL [Concomitant]
     Indication: HYPERTENSION
     Dosage: UNK, UNKNOWN
  5. LASIX [Concomitant]
     Dosage: UNK, UNKNOWN
     Dates: end: 20081201
  6. LORTAB [Concomitant]
     Indication: FIBROMYALGIA
     Dosage: UNK, UNKNOWN
     Dates: start: 20051001
  7. FLEXERIL [Concomitant]
     Indication: FIBROMYALGIA
     Dosage: UNK, AS NEEDED
  8. TYLENOL                                 /SCH/ [Concomitant]
     Indication: FIBROMYALGIA
     Dosage: UNK, UNKNOWN
  9. CELEBREX [Concomitant]
     Indication: ARTHRITIS
     Dosage: UNK, UNKNOWN
  10. NAPROSYN [Concomitant]
     Indication: ARTHRITIS
     Dosage: UNK, UNKNOWN

REACTIONS (11)
  - ABDOMINAL PAIN [None]
  - BACK INJURY [None]
  - BLOOD GLUCOSE INCREASED [None]
  - DYSPEPSIA [None]
  - INSOMNIA [None]
  - MEMORY IMPAIRMENT [None]
  - MYALGIA [None]
  - PHARYNGITIS STREPTOCOCCAL [None]
  - POLYP [None]
  - RECTAL HAEMORRHAGE [None]
  - STRESS [None]
